FAERS Safety Report 14203634 (Version 1)
Quarter: 2017Q4

REPORT INFORMATION
  Report Type: Spontaneous
  Country: US (occurrence: None)
  Receive Date: 20171117
  Receipt Date: 20171117
  Transmission Date: 20180321
  Serious: No
  Sender: FDA-Public Use
  Company Number: None

PATIENT
  Age: 55 Year
  Sex: Male

DRUGS (1)
  1. HUMIRA [Suspect]
     Active Substance: ADALIMUMAB
     Indication: PRODUCT USED FOR UNKNOWN INDICATION
     Dosage: 40MG EVERY 2 WEEKS SUB
     Route: 058
     Dates: start: 20170427

REACTIONS (3)
  - Fatigue [None]
  - Stress [None]
  - Pollakiuria [None]

NARRATIVE: CASE EVENT DATE: 20170828
